FAERS Safety Report 14361949 (Version 5)
Quarter: 2018Q3

REPORT INFORMATION
  Report Type: Report from Study
  Country: US (occurrence: US)
  Receive Date: 20180108
  Receipt Date: 20180925
  Transmission Date: 20181010
  Serious: No
  Sender: FDA-Public Use
  Company Number: PHEH2018US000621

PATIENT
  Sex: Female

DRUGS (1)
  1. ENTRESTO [Suspect]
     Active Substance: SACUBITRIL\VALSARTAN
     Indication: CARDIAC FAILURE CONGESTIVE
     Dosage: 50 MG, BID (SACUBITRIL 24MG, VALSARTAN 26MG)
     Route: 048

REACTIONS (4)
  - Fatigue [Unknown]
  - Influenza [Unknown]
  - Urinary tract infection [Unknown]
  - Dizziness [Unknown]
